FAERS Safety Report 18032902 (Version 3)
Quarter: 2021Q1

REPORT INFORMATION
  Report Type: Spontaneous
  Country: US (occurrence: US)
  Receive Date: 20200716
  Receipt Date: 20210106
  Transmission Date: 20210419
  Serious: No
  Sender: FDA-Public Use
  Company Number: US-SA-2020SA184139

PATIENT

DRUGS (1)
  1. PRALUENT [Suspect]
     Active Substance: ALIROCUMAB
     Indication: CARDIAC DISORDER
     Dosage: 75 MG, QOW
     Route: 058
     Dates: start: 20200407, end: 2020

REACTIONS (6)
  - Fatigue [Recovered/Resolved]
  - Myalgia [Recovered/Resolved]
  - Product dose omission issue [Unknown]
  - Dyspnoea [Recovered/Resolved]
  - Drug ineffective [Unknown]
  - Hypercholesterolaemia [Recovered/Resolved]

NARRATIVE: CASE EVENT DATE: 2020
